FAERS Safety Report 6317465-0 (Version None)
Quarter: 2009Q3

REPORT INFORMATION
  Report Type: 
  Country: None (occurrence: None)
  Receive Date: 20090821
  Receipt Date: 20090814
  Transmission Date: 20100115
  Serious: Yes (Other)
  Sender: FDA-Public Use
  Company Number: US-JNJFOC-20090805288

PATIENT
  Sex: Female

DRUGS (1)
  1. HALDOL [Suspect]
     Indication: AGITATION
     Route: 048

REACTIONS (2)
  - ANAPHYLACTOID REACTION [None]
  - CARDIOVASCULAR DISORDER [None]
